FAERS Safety Report 4801978-4 (Version None)
Quarter: 2005Q4

REPORT INFORMATION
  Report Type: 
  Country: None (occurrence: None)
  Receive Date: 20051018
  Receipt Date: 20051011
  Transmission Date: 20060501
  Serious: Yes (Hospitalization)
  Sender: FDA-Public Use
  Company Number: US-MERCK-0510USA06639

PATIENT
  Age: 18 Year
  Sex: Male

DRUGS (1)
  1. ELSPAR [Suspect]
     Indication: CHEMOTHERAPY
     Route: 051

REACTIONS (9)
  - ABDOMINAL COMPARTMENT SYNDROME [None]
  - ENTEROCOCCAL INFECTION [None]
  - HAEMORRHAGE [None]
  - INFECTION [None]
  - PANCREATIC NECROSIS [None]
  - PANCREATIC PSEUDOCYST [None]
  - PANCREATITIS ACUTE [None]
  - SHOCK HAEMORRHAGIC [None]
  - STAPHYLOCOCCAL INFECTION [None]
